FAERS Safety Report 14312779 (Version 1)
Quarter: 2017Q4

REPORT INFORMATION
  Report Type: Spontaneous
  Country: US (occurrence: US)
  Receive Date: 20171221
  Receipt Date: 20171221
  Transmission Date: 20180321
  Serious: No
  Sender: FDA-Public Use
  Company Number: US-BAYER-2017-240340

PATIENT
  Age: 76 Year
  Sex: Male
  Weight: 83.99 kg

DRUGS (4)
  1. LOTRIMIN ULTRA ANTIFUNGAL [Suspect]
     Active Substance: BUTENAFINE HYDROCHLORIDE
     Indication: THERAPEUTIC SKIN CARE TOPICAL
     Dosage: UNK UNK, BID
     Route: 061
     Dates: start: 201711, end: 2017
  2. TINACTIN ANTIFUNGAL [Suspect]
     Active Substance: TOLNAFTATE
     Indication: THERAPEUTIC SKIN CARE TOPICAL
     Route: 061
     Dates: start: 20171018, end: 2017
  3. TINACTIN ANTIFUNGAL [Suspect]
     Active Substance: TOLNAFTATE
     Indication: TINEA PEDIS
  4. DIAL CLEAR AND REFRESH ANTIBACTERIAL HAND SOAP CLEAR [Concomitant]
     Active Substance: TRICLOSAN
     Dosage: UNK

REACTIONS (4)
  - Product use issue [Unknown]
  - Circumstance or information capable of leading to medication error [Unknown]
  - Drug ineffective [Unknown]
  - Drug administered at inappropriate site [Unknown]
